FAERS Safety Report 6236394-4 (Version None)
Quarter: 2009Q2

REPORT INFORMATION
  Report Type: 
  Country: None (occurrence: None)
  Receive Date: 20090619
  Receipt Date: 20090616
  Transmission Date: 20091009
  Serious: Yes (Death, Hospitalization, Other)
  Sender: FDA-Public Use
  Company Number: US-AMGEN-US349572

PATIENT
  Sex: Male
  Weight: 93.1 kg

DRUGS (12)
  1. NPLATE [Suspect]
     Indication: IDIOPATHIC THROMBOCYTOPENIC PURPURA
     Route: 058
     Dates: start: 20080925, end: 20081016
  2. FENTANYL [Concomitant]
     Route: 062
  3. DILAUDID [Concomitant]
     Route: 048
  4. DILAUDID [Concomitant]
     Route: 042
  5. PREDNISONE TAB [Concomitant]
     Route: 048
  6. DARVOCET-N 100 [Concomitant]
     Route: 048
  7. TEMAZEPAM [Concomitant]
     Route: 048
  8. PRILOSEC [Concomitant]
     Route: 048
  9. DIGOXIN [Concomitant]
     Route: 048
  10. SIMVASTATIN [Concomitant]
     Route: 048
  11. COZAAR [Concomitant]
     Route: 048
  12. LOPRESSOR [Concomitant]
     Route: 048

REACTIONS (10)
  - ACUTE RESPIRATORY FAILURE [None]
  - ATRIAL FIBRILLATION [None]
  - CEREBROVASCULAR ACCIDENT [None]
  - DEATH [None]
  - HYPOTENSION [None]
  - ISCHAEMIC CARDIOMYOPATHY [None]
  - PNEUMONIA [None]
  - RENAL FAILURE [None]
  - SEPSIS [None]
  - THROMBOCYTOPENIA [None]
